FAERS Safety Report 18350091 (Version 3)
Quarter: 2021Q1

REPORT INFORMATION
  Report Type: Spontaneous
  Country: FR (occurrence: FR)
  Receive Date: 20201006
  Receipt Date: 20210211
  Transmission Date: 20210419
  Serious: Yes (Hospitalization, Other)
  Sender: FDA-Public Use
  Company Number: FR-BRISTOL-MYERS SQUIBB COMPANY-BMS-2020-080791

PATIENT
  Age: 32 Year
  Sex: Male
  Weight: 88 kg

DRUGS (2)
  1. INNOHEP [Concomitant]
     Active Substance: TINZAPARIN SODIUM
     Indication: PRODUCT USED FOR UNKNOWN INDICATION
     Dosage: UNK
     Route: 065
  2. ELIQUIS [Suspect]
     Active Substance: APIXABAN
     Indication: DEEP VEIN THROMBOSIS
     Dosage: 5 MILLIGRAM, BID
     Route: 065
     Dates: start: 20200801

REACTIONS (3)
  - Prescribed underdose [Unknown]
  - Intracranial tumour haemorrhage [Recovering/Resolving]
  - Glioblastoma [Unknown]

NARRATIVE: CASE EVENT DATE: 202008
